FAERS Safety Report 10729188 (Version 1)
Quarter: 2015Q1

REPORT INFORMATION
  Report Type: Spontaneous
  Country: US (occurrence: None)
  Receive Date: 20150120
  Receipt Date: 20150120
  Transmission Date: 20150721
  Serious: Yes (Disabling)
  Sender: FDA-Public Use
  Company Number: None

PATIENT
  Age: 57 Year
  Sex: Female
  Weight: 83.92 kg

DRUGS (1)
  1. LEVOFLOXACIN. [Suspect]
     Active Substance: LEVOFLOXACIN
     Indication: SINUSITIS
     Dosage: 1 TAB ONCE DAILY TAKEN BY MOUTH
     Route: 048
     Dates: start: 20141223, end: 20141227

REACTIONS (13)
  - Vulvovaginal pruritus [None]
  - Sleep disorder [None]
  - Confusional state [None]
  - Muscle spasms [None]
  - Headache [None]
  - Migraine [None]
  - Chromaturia [None]
  - Tendonitis [None]
  - Gait disturbance [None]
  - Pain in extremity [None]
  - Back pain [None]
  - Depression [None]
  - Insomnia [None]

NARRATIVE: CASE EVENT DATE: 20141227
